FAERS Safety Report 6849692-8 (Version None)
Quarter: 2010Q3

REPORT INFORMATION
  Report Type: 
  Country: None (occurrence: None)
  Receive Date: 20100716
  Receipt Date: 20071102
  Transmission Date: 20110219
  Serious: Yes (Other)
  Sender: FDA-Public Use
  Company Number: US-PFIZER INC-2007083260

PATIENT
  Sex: Male
  Weight: 95.454 kg

DRUGS (9)
  1. CHANTIX [Suspect]
     Indication: SMOKING CESSATION THERAPY
     Dates: start: 20070928, end: 20070930
  2. TRAZODONE HYDROCHLORIDE [Concomitant]
  3. LYRICA [Concomitant]
  4. MORPHINE [Concomitant]
  5. BACLOFEN [Concomitant]
  6. LUNESTA [Concomitant]
  7. WELLBUTRIN [Concomitant]
  8. MULTI-VITAMINS [Concomitant]
  9. VICODIN [Concomitant]

REACTIONS (3)
  - LIP SWELLING [None]
  - TOOTHACHE [None]
  - VIITH NERVE PARALYSIS [None]
